FAERS Safety Report 11216415 (Version 1)
Quarter: 2015Q2

REPORT INFORMATION
  Report Type: Spontaneous
  Country: US (occurrence: US)
  Receive Date: 20150624
  Receipt Date: 20150624
  Transmission Date: 20150821
  Serious: No
  Sender: FDA-Public Use
  Company Number: US-AMGEN-USASP2015060320

PATIENT
  Age: 38 Year
  Sex: Male

DRUGS (1)
  1. ENBREL [Suspect]
     Active Substance: ETANERCEPT
     Indication: PSORIASIS
     Dosage: 50 MG, QWK
     Route: 065
     Dates: start: 20150505

REACTIONS (7)
  - Lethargy [Unknown]
  - Grip strength decreased [Unknown]
  - Asthenia [Unknown]
  - Muscle tightness [Unknown]
  - Peripheral swelling [Unknown]
  - Oedema peripheral [Unknown]
  - Anger [Unknown]

NARRATIVE: CASE EVENT DATE: 2015
